FAERS Safety Report 17911360 (Version 1)
Quarter: 2020Q2

REPORT INFORMATION
  Report Type: Spontaneous
  Country: CN (occurrence: CN)
  Receive Date: 20200618
  Receipt Date: 20200618
  Transmission Date: 20200714
  Serious: Yes (Hospitalization, Other)
  Sender: FDA-Public Use
  Company Number: CN-009507513-2006CHN006279

PATIENT
  Age: 56 Year
  Sex: Female
  Weight: 49 kg

DRUGS (4)
  1. SODIUM CHLORIDE. [Concomitant]
     Active Substance: SODIUM CHLORIDE
     Dosage: 100 MILLILITER
     Dates: start: 20200613, end: 20200613
  2. KEYTRUDA [Suspect]
     Active Substance: PEMBROLIZUMAB
     Indication: IMMUNE ENHANCEMENT THERAPY
     Dosage: 200 MILLIGRAM, QD
     Route: 041
     Dates: start: 20200520, end: 20200520
  3. KEYTRUDA [Suspect]
     Active Substance: PEMBROLIZUMAB
     Dosage: 200 MILLIGRAM, QD
     Route: 041
     Dates: start: 20200613, end: 20200613
  4. SODIUM CHLORIDE. [Concomitant]
     Active Substance: SODIUM CHLORIDE
     Indication: IMMUNE ENHANCEMENT THERAPY
     Dosage: 100 MILLILITER
     Dates: start: 20200520, end: 20200520

REACTIONS (1)
  - Immune-mediated hyperthyroidism [Not Recovered/Not Resolved]

NARRATIVE: CASE EVENT DATE: 20200611
